FAERS Safety Report 8313166-8 (Version None)
Quarter: 2012Q2

REPORT INFORMATION
  Report Type: 
  Country: None (occurrence: None)
  Receive Date: 20120426
  Receipt Date: 20120423
  Transmission Date: 20120825
  Serious: Yes (Hospitalization)
  Sender: FDA-Public Use
  Company Number: FR-AMGEN-FRACT2012025558

PATIENT
  Age: 40 Year
  Sex: Female

DRUGS (3)
  1. PREDNISONE TAB [Concomitant]
     Dosage: 15 MG, UNK
     Dates: start: 20030101
  2. PLAQUENIL [Concomitant]
     Dosage: UNK
     Dates: start: 20030101
  3. ROMIPLOSTIM [Suspect]
     Indication: THROMBOCYTOPENIA

REACTIONS (1)
  - CEREBROVASCULAR ACCIDENT [None]
